FAERS Safety Report 23810389 (Version 1)
Quarter: 2024Q2

REPORT INFORMATION
  Report Type: Spontaneous
  Country: US (occurrence: None)
  Receive Date: 20240501
  Receipt Date: 20240501
  Transmission Date: 20240716
  Serious: No
  Sender: FDA-Public Use
  Company Number: None

PATIENT
  Age: 77 Year
  Sex: Male
  Weight: 74.7 kg

DRUGS (1)
  1. LUMASON [Suspect]
     Active Substance: SULFUR HEXAFLUORIDE
     Indication: Echocardiogram
     Dates: start: 20240421, end: 20240421

REACTIONS (6)
  - Flushing [None]
  - Hyperhidrosis [None]
  - Tachycardia [None]
  - Supraventricular tachycardia [None]
  - Blood pressure decreased [None]
  - Contrast media reaction [None]

NARRATIVE: CASE EVENT DATE: 20240421
